FAERS Safety Report 17198945 (Version 5)
Quarter: 2020Q3

REPORT INFORMATION
  Report Type: Report from Study
  Country: BR (occurrence: BR)
  Receive Date: 20191225
  Receipt Date: 20200806
  Transmission Date: 20201102
  Serious: Yes (Other)
  Sender: FDA-Public Use
  Company Number: NVSC2019BR070089

PATIENT
  Age: 48 Year
  Sex: Female
  Weight: 65 kg

DRUGS (9)
  1. COSENTYX [Suspect]
     Active Substance: SECUKINUMAB
     Dosage: UNK
     Route: 058
     Dates: start: 20191108
  2. PARACETAMOL WITH CODEINE PHOSPHATE [Concomitant]
     Active Substance: ACETAMINOPHEN\CODEINE PHOSPHATE
     Indication: BURSITIS
     Dosage: UNK DF, QD
     Route: 048
  3. PARACETAMOL WITH CODEINE PHOSPHATE [Concomitant]
     Active Substance: ACETAMINOPHEN\CODEINE PHOSPHATE
     Indication: ARTHRALGIA
  4. COSENTYX [Suspect]
     Active Substance: SECUKINUMAB
     Dosage: 300 MG
     Route: 058
     Dates: start: 20190313
  5. COSENTYX [Suspect]
     Active Substance: SECUKINUMAB
     Dosage: UNK
     Route: 058
     Dates: start: 20191211
  6. PARACETAMOL WITH CODEINE PHOSPHATE [Concomitant]
     Active Substance: ACETAMINOPHEN\CODEINE PHOSPHATE
     Indication: SPINAL PAIN
  7. PREGABALIN. [Concomitant]
     Active Substance: PREGABALIN
     Indication: ANXIETY
     Dosage: 1 DF, QD
     Route: 048
  8. TRAMADOL HYDROCHLORIDE. [Concomitant]
     Active Substance: TRAMADOL HYDROCHLORIDE
     Indication: BURSITIS
     Dosage: 1 DF, Q12H
     Route: 048
  9. COSENTYX [Suspect]
     Active Substance: SECUKINUMAB
     Indication: PSORIASIS
     Dosage: 300 MG, QMO
     Route: 058
     Dates: start: 20190208

REACTIONS (33)
  - Tooth infection [Recovered/Resolved]
  - Dental plaque [Recovered/Resolved]
  - Arthralgia [Unknown]
  - Dysstasia [Unknown]
  - Amenorrhoea [Not Recovered/Not Resolved]
  - Menstruation irregular [Not Recovered/Not Resolved]
  - Arthritis [Not Recovered/Not Resolved]
  - Dental discomfort [Unknown]
  - Hyperaesthesia teeth [Unknown]
  - Menstruation delayed [Unknown]
  - Menorrhagia [Unknown]
  - Noninfective gingivitis [Recovered/Resolved]
  - Pulpitis dental [Unknown]
  - Obesity [Not Recovered/Not Resolved]
  - Urinary tract infection [Not Recovered/Not Resolved]
  - Thyroid disorder [Not Recovered/Not Resolved]
  - Anxiety [Unknown]
  - Tooth loss [Recovered/Resolved]
  - Purging [Unknown]
  - Bursitis [Not Recovered/Not Resolved]
  - Hypokinesia [Not Recovered/Not Resolved]
  - Tooth disorder [Recovered/Resolved]
  - Pain [Unknown]
  - Toothache [Recovered/Resolved]
  - Gingival abscess [Recovered/Resolved]
  - Teething [Recovered/Resolved with Sequelae]
  - Toothache [Unknown]
  - Nausea [Not Recovered/Not Resolved]
  - Chromaturia [Unknown]
  - Urine odour abnormal [Unknown]
  - Tooth injury [Unknown]
  - Arthralgia [Not Recovered/Not Resolved]
  - Osteoporosis [Unknown]

NARRATIVE: CASE EVENT DATE: 2019
